FAERS Safety Report 16567436 (Version 2)
Quarter: 2019Q3

REPORT INFORMATION
  Report Type: Spontaneous
  Country: US (occurrence: US)
  Receive Date: 20190712
  Receipt Date: 20190723
  Transmission Date: 20191004
  Serious: Yes (Other)
  Sender: FDA-Public Use
  Company Number: US-ASTRAZENECA-2019SE98063

PATIENT
  Age: 27916 Day
  Sex: Female

DRUGS (6)
  1. PATANASE [Concomitant]
     Active Substance: OLOPATADINE HYDROCHLORIDE
  2. MULTIVITAMIN [Concomitant]
     Active Substance: VITAMINS
  3. LEVOTHYROXINE. [Concomitant]
     Active Substance: LEVOTHYROXINE
  4. EXFORGE [Concomitant]
     Active Substance: AMLODIPINE BESYLATE\VALSARTAN
  5. NEXIUM [Suspect]
     Active Substance: ESOMEPRAZOLE MAGNESIUM
     Route: 048
     Dates: start: 2001, end: 2014
  6. FLEXERIL [Concomitant]
     Active Substance: CYCLOBENZAPRINE HYDROCHLORIDE

REACTIONS (2)
  - Nephrogenic anaemia [Unknown]
  - Chronic kidney disease [Unknown]

NARRATIVE: CASE EVENT DATE: 20110804
